FAERS Safety Report 4440930-8 (Version None)
Quarter: 2004Q3

REPORT INFORMATION
  Report Type: 
  Country: None (occurrence: None)
  Receive Date: 20040728
  Receipt Date: 20040406
  Transmission Date: 20050211
  Serious: No
  Sender: FDA-Public Use
  Company Number: USA040464258

PATIENT
  Age: 11 Year
  Weight: 68 kg

DRUGS (1)
  1. STRATTERA [Suspect]
     Indication: VISION BLURRED
     Dosage: 40 MG

REACTIONS (4)
  - CHEST DISCOMFORT [None]
  - COUGH [None]
  - DYSPNOEA [None]
  - FATIGUE [None]
